FAERS Safety Report 26170628 (Version 1)
Quarter: 2025Q4

REPORT INFORMATION
  Report Type: Spontaneous
  Country: US (occurrence: US)
  Receive Date: 20251217
  Receipt Date: 20251217
  Transmission Date: 20260118
  Serious: Yes (Life-Threatening, Hospitalization)
  Sender: DR REDDYS
  Company Number: US-MLMSERVICE-20251201-PI735452-00129-1

PATIENT
  Age: 97 Year
  Sex: Female

DRUGS (1)
  1. DOXYCYCLINE [Suspect]
     Active Substance: DOXYCYCLINE
     Indication: Urinary tract infection

REACTIONS (1)
  - Stevens-Johnson syndrome [Recovering/Resolving]
